FAERS Safety Report 19055462 (Version 1)
Quarter: 2021Q1

REPORT INFORMATION
  Report Type: Spontaneous
  Country: US (occurrence: US)
  Receive Date: 20210325
  Receipt Date: 20210325
  Transmission Date: 20210420
  Serious: Yes (Life-Threatening, Other)
  Sender: FDA-Public Use
  Company Number: US-JNJFOC-20210343874

PATIENT
  Age: 18 Year
  Sex: Female

DRUGS (9)
  1. FONDAPARINUX [Suspect]
     Active Substance: FONDAPARINUX
  2. RIVAROXABAN [Suspect]
     Active Substance: RIVAROXABAN
     Indication: ANTIPHOSPHOLIPID SYNDROME
     Dosage: UNK
     Route: 048
     Dates: start: 201611
  3. ENOXAPARIN [Suspect]
     Active Substance: ENOXAPARIN
  4. HYDROXYCHLOROQUINE [Suspect]
     Active Substance: HYDROXYCHLOROQUINE
  5. RITUXIMAB. [Suspect]
     Active Substance: RITUXIMAB
  6. ACETYLSALICYLIC ACID [Suspect]
     Active Substance: ASPIRIN
     Indication: ANTIPHOSPHOLIPID SYNDROME
     Route: 065
  7. APIXABAN [Suspect]
     Active Substance: APIXABAN
  8. WARFARIN [Suspect]
     Active Substance: WARFARIN
     Dosage: UNK
     Dates: start: 201611
  9. CLOPIDOGREL [Suspect]
     Active Substance: CLOPIDOGREL BISULFATE

REACTIONS (9)
  - Off label use [Unknown]
  - Pulmonary embolism [Recovered/Resolved]
  - Subclavian vein thrombosis [Unknown]
  - Thrombophlebitis superficial [Unknown]
  - Pelvic venous thrombosis [Unknown]
  - Deep vein thrombosis [Unknown]
  - Hepatic infarction [Unknown]
  - Product use in unapproved indication [Unknown]
  - Drug ineffective for unapproved indication [Unknown]
